FAERS Safety Report 7114324-0 (Version None)
Quarter: 2010Q4

REPORT INFORMATION
  Report Type: 
  Country: None (occurrence: None)
  Receive Date: 20101119
  Receipt Date: 20101116
  Transmission Date: 20110411
  Serious: Yes (Hospitalization)
  Sender: FDA-Public Use
  Company Number: FR-ABBOTT-10P-056-0685918-00

PATIENT
  Age: 41 Year
  Sex: Female

DRUGS (4)
  1. DEPAKOTE [Suspect]
     Indication: INTENTIONAL OVERDOSE
     Dosage: GASTRO-RESISTANT TABLET, ONCE
     Route: 048
     Dates: start: 20090904, end: 20090904
  2. DEPAKOTE [Suspect]
     Dosage: GASTRO-RESISTANT TABLET
     Route: 048
     Dates: start: 20090301, end: 20090904
  3. THERALENE [Suspect]
     Indication: PRODUCT USED FOR UNKNOWN INDICATION
     Dosage: ORAL DROPS, SOLUTION; ORAL; UNKNOWN
     Route: 048
  4. BENZODIAZEPINE DERIVATIVES [Concomitant]
     Indication: PRODUCT USED FOR UNKNOWN INDICATION

REACTIONS (7)
  - CARDIOGENIC SHOCK [None]
  - COMA [None]
  - HYPONATRAEMIA [None]
  - MULTI-ORGAN FAILURE [None]
  - MULTIPLE DRUG OVERDOSE INTENTIONAL [None]
  - PERICARDITIS [None]
  - SUICIDE ATTEMPT [None]
